FAERS Safety Report 9410656 (Version 1)
Quarter: 2013Q2

REPORT INFORMATION
  Report Type: Spontaneous
  Country: US (occurrence: US)
  Receive Date: 20130424
  Receipt Date: 20130424
  Transmission Date: 20140414
  Serious: Yes (Hospitalization)
  Sender: FDA-Public Use
  Company Number: 20130183

PATIENT
  Age: 64 Year
  Sex: Female
  Weight: 76.2 kg

DRUGS (5)
  1. VENOFER [Suspect]
     Indication: ANAEMIA
     Dosage: ONE DOSE PER WEEK.
     Route: 042
     Dates: start: 20130301
  2. REMICADE [Suspect]
     Indication: COLITIS ULCERATIVE
     Dosage: ONE DOSE TAKEN EVERY OTHER MONTH.
     Route: 042
     Dates: start: 2012
  3. AZOR (ALPRAZOLAM) [Concomitant]
  4. ONGLYZA (SAXAGLIPTIN) [Concomitant]
  5. LIALDA (MESALAZINE) [Concomitant]

REACTIONS (6)
  - Diarrhoea [None]
  - Nausea [None]
  - Inflammation [None]
  - Gastrointestinal disorder [None]
  - Asthenia [None]
  - Weight decreased [None]
